FAERS Safety Report 6244782-5 (Version None)
Quarter: 2009Q2

REPORT INFORMATION
  Report Type: 
  Country: None (occurrence: None)
  Receive Date: 20090625
  Receipt Date: 20090617
  Transmission Date: 20091009
  Serious: Yes (Hospitalization)
  Sender: FDA-Public Use
  Company Number: US-NOVOPROD-288417

PATIENT
  Sex: Male

DRUGS (3)
  1. LEVEMIR [Suspect]
     Indication: INSULIN-REQUIRING TYPE 2 DIABETES MELLITUS
     Dosage: 25 IU, QD IN MORNING
     Route: 058
  2. HUMALOG [Suspect]
     Indication: INSULIN-REQUIRING TYPE 2 DIABETES MELLITUS
     Dosage: 3 IU, TID WITH MEALS
     Route: 058
  3. ASPIRIN [Concomitant]
     Indication: PROPHYLAXIS
     Dosage: 81 MG, QD
     Route: 048

REACTIONS (3)
  - BLOOD GLUCOSE FLUCTUATION [None]
  - HEART RATE INCREASED [None]
  - HEART RATE IRREGULAR [None]
